FAERS Safety Report 15433507 (Version 1)
Quarter: 2018Q3

REPORT INFORMATION
  Report Type: Spontaneous
  Country: US (occurrence: US)
  Receive Date: 20180921
  Receipt Date: 20180921
  Transmission Date: 20181010
  Serious: Yes (Other)
  Sender: FDA-Public Use
  Company Number: None

PATIENT
  Age: 32 Year
  Sex: Female
  Weight: 80 kg

DRUGS (2)
  1. SODIUM FERRIC GLUCONATE COMPLEX. [Suspect]
     Active Substance: SODIUM FERRIC GLUCONATE COMPLEX
     Indication: IRON DEFICIENCY ANAEMIA
     Dosage: ?          OTHER FREQUENCY:ONCE OVER 2 HOURS;?
     Route: 042
  2. SODIUM FERRIC GLUCONATE COMPLEX. [Suspect]
     Active Substance: SODIUM FERRIC GLUCONATE COMPLEX
     Indication: MICROCYTIC ANAEMIA
     Dosage: ?          OTHER FREQUENCY:ONCE OVER 2 HOURS;?
     Route: 042

REACTIONS (12)
  - Rash [None]
  - Swelling [None]
  - Peripheral swelling [None]
  - Vomiting [None]
  - Rash macular [None]
  - Discomfort [None]
  - Dyspnoea [None]
  - Maternal exposure during pregnancy [None]
  - Foetal exposure during pregnancy [None]
  - Feeling hot [None]
  - Oral pruritus [None]
  - Urticaria [None]

NARRATIVE: CASE EVENT DATE: 20180521
